FAERS Safety Report 8904753 (Version 3)
Quarter: 2013Q1

REPORT INFORMATION
  Report Type: Spontaneous
  Country: JP (occurrence: JP)
  Receive Date: 20121113
  Receipt Date: 20130102
  Transmission Date: 20140127
  Serious: Yes (Life-Threatening, Other)
  Sender: FDA-Public Use
  Company Number: JP-JNJFOC-20121104976

PATIENT
  Age: 85 Year
  Sex: Male
  Weight: 34 kg

DRUGS (9)
  1. REMINYL [Suspect]
     Indication: DEMENTIA
     Route: 048
     Dates: start: 20120920
  2. DOPACOL [Concomitant]
     Indication: PARKINSONISM
     Route: 048
  3. THEOPHYLLINE [Concomitant]
     Indication: BRONCHITIS CHRONIC
     Route: 048
  4. OSPAIN [Concomitant]
     Indication: POSTOPERATIVE ANALGESIA
     Route: 048
  5. ALDIOXA [Concomitant]
     Indication: GASTRITIS
     Route: 048
  6. LEBELBON [Concomitant]
     Indication: BRONCHITIS CHRONIC
     Route: 048
  7. KIPRES [Concomitant]
     Indication: ASTHMA
     Route: 048
  8. FUROSEMIDE [Concomitant]
     Indication: OEDEMA
     Route: 048
  9. MAGNESIUM OXIDE [Concomitant]
     Indication: CONSTIPATION
     Route: 048

REACTIONS (2)
  - Pneumonia aspiration [Recovering/Resolving]
  - Haemoptysis [Recovering/Resolving]
